FAERS Safety Report 8200490-2 (Version None)
Quarter: 2012Q1

REPORT INFORMATION
  Report Type: 
  Country: None (occurrence: None)
  Receive Date: 20120312
  Receipt Date: 20120302
  Transmission Date: 20120608
  Serious: Yes (Hospitalization, Other)
  Sender: FDA-Public Use
  Company Number: US-BAYER-2011-090652

PATIENT
  Age: 40 Year
  Sex: Female
  Weight: 81.633 kg

DRUGS (8)
  1. VITAMIIN C [Concomitant]
     Dosage: UNK
     Dates: start: 19700101
  2. CYMBALTA [Concomitant]
     Dosage: 30 MG, UNK
     Dates: start: 20071009, end: 20100118
  3. YAZ [Suspect]
     Indication: MENSTRUAL CYCLE MANAGEMENT
     Dosage: UNK
     Dates: start: 20071206, end: 20090109
  4. CYMBALTA [Concomitant]
     Indication: FIBROMYALGIA
     Dosage: UNK
     Dates: start: 20040101, end: 20090101
  5. NSAID'S [Concomitant]
     Dosage: UNK
     Dates: start: 20000101
  6. ORTHO TRI-CYCLEN [Concomitant]
  7. YAZ [Suspect]
     Indication: PREMENSTRUAL SYNDROME
  8. UNKNOWN DRUG [Concomitant]
     Dosage: UNK
     Dates: start: 20080101

REACTIONS (5)
  - ABDOMINAL PAIN [None]
  - PAIN [None]
  - CHOLELITHIASIS [None]
  - CHOLECYSTITIS ACUTE [None]
  - ABDOMINAL PAIN UPPER [None]
